FAERS Safety Report 7447348-4 (Version None)
Quarter: 2011Q2

REPORT INFORMATION
  Report Type: 
  Country: None (occurrence: None)
  Receive Date: 20110429
  Receipt Date: 20110420
  Transmission Date: 20111010
  Serious: Yes (Hospitalization)
  Sender: FDA-Public Use
  Company Number: MY-JNJFOC-20110308956

PATIENT
  Sex: Male
  Weight: 82 kg

DRUGS (2)
  1. USTEKINUMAB [Suspect]
     Route: 058
  2. USTEKINUMAB [Suspect]
     Indication: PSORIASIS
     Route: 058

REACTIONS (4)
  - RASH PUSTULAR [None]
  - OEDEMA PERIPHERAL [None]
  - DERMATITIS EXFOLIATIVE [None]
  - WEIGHT INCREASED [None]
